FAERS Safety Report 6320875-9 (Version None)
Quarter: 2009Q3

REPORT INFORMATION
  Report Type: 
  Country: None (occurrence: None)
  Receive Date: 20090822
  Receipt Date: 20081216
  Transmission Date: 20100115
  Serious: No
  Sender: FDA-Public Use
  Company Number: US-ABBOTT-08P-163-0493355-00

PATIENT
  Sex: Female
  Weight: 58.112 kg

DRUGS (4)
  1. NIASPAN [Suspect]
     Indication: BLOOD CHOLESTEROL INCREASED
     Route: 048
     Dates: start: 20081202
  2. TRIAMTERENE AND HYDROCHLOROTHIAZIDE [Concomitant]
     Indication: HYPERTENSION
     Dosage: 37.5/25
     Route: 048
  3. TRANDOLOPRIL [Concomitant]
     Indication: HYPERTENSION
     Route: 048
  4. THYROID TAB [Concomitant]
     Indication: HYPOTHYROIDISM
     Route: 048

REACTIONS (4)
  - DIARRHOEA [None]
  - HOT FLUSH [None]
  - NAUSEA [None]
  - PALPITATIONS [None]
